FAERS Safety Report 9010570 (Version 6)
Quarter: 2014Q3

REPORT INFORMATION
  Report Type: Spontaneous
  Country: US (occurrence: US)
  Receive Date: 20130109
  Receipt Date: 20140703
  Transmission Date: 20150326
  Serious: Yes (Hospitalization, Disabling, Other)
  Sender: FDA-Public Use
  Company Number: US-009507513-1301USA001567

PATIENT
  Sex: Female
  Weight: 59.41 kg

DRUGS (3)
  1. FOSAMAX PLUS D [Suspect]
     Active Substance: ALENDRONATE SODIUM\CHOLECALCIFEROL
     Indication: OSTEOPOROSIS
     Dosage: 70 MG, UNK
     Route: 048
     Dates: start: 20070809, end: 20080901
  2. ALENDRONATE SODIUM. [Suspect]
     Active Substance: ALENDRONATE SODIUM
     Indication: OSTEOPOROSIS
     Dosage: 70 MG, UNK
     Route: 048
     Dates: start: 20081022, end: 20101103
  3. FOSAMAX [Suspect]
     Active Substance: ALENDRONATE SODIUM
     Indication: OSTEOPOROSIS
     Dosage: 70 MG, UNK
     Route: 048
     Dates: start: 199811, end: 20070710

REACTIONS (38)
  - Depression [Unknown]
  - Nephrolithiasis [Unknown]
  - Infection [Unknown]
  - Influenza [Unknown]
  - Pain [Unknown]
  - Nephrolithiasis [Unknown]
  - Osteopenia [Unknown]
  - Osteoporosis [Unknown]
  - Stress fracture [Unknown]
  - Foot fracture [Unknown]
  - Hypertension [Unknown]
  - Arthritis [Unknown]
  - Cataract operation [Unknown]
  - Intervertebral disc degeneration [Unknown]
  - Spinal operation [Unknown]
  - Rheumatoid arthritis [Unknown]
  - Limb asymmetry [Unknown]
  - Fibula fracture [Unknown]
  - Osteoarthritis [Unknown]
  - Blood cholesterol increased [Unknown]
  - Haemorrhoid operation [Unknown]
  - Fracture [Unknown]
  - Nephrolithiasis [Unknown]
  - Arthralgia [Unknown]
  - Femur fracture [Recovered/Resolved]
  - Spinal laminectomy [Unknown]
  - Low turnover osteopathy [Unknown]
  - Bone disorder [Unknown]
  - Spinal fracture [Unknown]
  - Fracture nonunion [Unknown]
  - Ankle fracture [Unknown]
  - Back pain [Not Recovered/Not Resolved]
  - Intramedullary rod insertion [Unknown]
  - Femur fracture [Unknown]
  - Anxiety [Unknown]
  - Bacterial infection [Unknown]
  - Urinary tract infection [Unknown]
  - Spinal column stenosis [Unknown]

NARRATIVE: CASE EVENT DATE: 2000
